FAERS Safety Report 8529708-3 (Version None)
Quarter: 2012Q3

REPORT INFORMATION
  Report Type: 
  Country: None (occurrence: None)
  Receive Date: 20120723
  Receipt Date: 20120709
  Transmission Date: 20120928
  Serious: Yes (Hospitalization)
  Sender: FDA-Public Use
  Company Number: ES-MYLANLABS-2012S1014369

PATIENT
  Age: 19 Year
  Sex: Female

DRUGS (8)
  1. METHOTREXATE [Concomitant]
     Indication: AUTOIMMUNE DISORDER
     Route: 065
  2. HYDROXYCHLOROQUINE SULFATE [Suspect]
     Indication: AUTOIMMUNE DISORDER
     Route: 065
  3. PYRAZINAMIDE [Concomitant]
     Indication: TUBERCULOSIS
     Route: 065
  4. RIFAMPICIN [Interacting]
     Indication: TUBERCULOSIS
     Route: 065
  5. FOLIC ACID [Concomitant]
     Indication: AUTOIMMUNE DISORDER
     Route: 065
  6. PREDNISONE [Concomitant]
     Indication: AUTOIMMUNE DISORDER
     Route: 065
  7. ETHAMBUTOL HYDROCHLORIDE [Concomitant]
     Indication: TUBERCULOSIS
     Route: 065
  8. ISONIAZID [Concomitant]
     Indication: TUBERCULOSIS
     Route: 065

REACTIONS (4)
  - TOXIC SKIN ERUPTION [None]
  - CONDITION AGGRAVATED [None]
  - DRUG INTERACTION [None]
  - AUTOIMMUNE DISORDER [None]
